FAERS Safety Report 23643415 (Version 1)
Quarter: 2024Q1

REPORT INFORMATION
  Report Type: Spontaneous
  Country: HR (occurrence: HR)
  Receive Date: 20240318
  Receipt Date: 20240318
  Transmission Date: 20240409
  Serious: Yes (Other)
  Sender: FDA-Public Use
  Company Number: HR-002147023-NVSC2024HR053692

PATIENT
  Sex: Male

DRUGS (1)
  1. MAYZENT [Suspect]
     Active Substance: SIPONIMOD
     Indication: Product used for unknown indication
     Dosage: 2 MG (1X1)
     Route: 065
     Dates: start: 202203

REACTIONS (6)
  - Gait spastic [Recovering/Resolving]
  - Quadriparesis [Recovering/Resolving]
  - Paraparesis [Recovering/Resolving]
  - Clonus [Recovering/Resolving]
  - Muscle atrophy [Recovering/Resolving]
  - Muscular weakness [Unknown]

NARRATIVE: CASE EVENT DATE: 20230901
